FAERS Safety Report 10229883 (Version 1)
Quarter: 2014Q2

REPORT INFORMATION
  Report Type: Spontaneous
  Country: US (occurrence: None)
  Receive Date: 20140610
  Receipt Date: 20140610
  Transmission Date: 20141212
  Serious: No
  Sender: FDA-Public Use
  Company Number: None

PATIENT
  Age: 86 Year
  Sex: Female
  Weight: 58.97 kg

DRUGS (11)
  1. CALCITONIN SALMON [Suspect]
     Indication: BONE DENSITY DECREASED
     Dosage: 1 PUFF
     Route: 045
  2. LEVOTHYROXIN [Concomitant]
  3. SIMVASTATIN [Concomitant]
  4. LISINOPRIL [Concomitant]
  5. CALEITONIN SALMON [Concomitant]
  6. NASAL SPRAY [Concomitant]
  7. LUTEIN [Concomitant]
  8. VITAMIN D [Concomitant]
  9. VITAMIN B [Concomitant]
  10. MAGNESIUM [Concomitant]
  11. MULTI VITAMIN [Concomitant]

REACTIONS (1)
  - Unevaluable event [None]
